FAERS Safety Report 13430000 (Version 1)
Quarter: 2017Q2

REPORT INFORMATION
  Report Type: Spontaneous
  Country: US (occurrence: US)
  Receive Date: 20170411
  Receipt Date: 20170411
  Transmission Date: 20170830
  Serious: Yes (Other)
  Sender: FDA-Public Use
  Company Number: None

PATIENT
  Age: 49 Year
  Sex: Female
  Weight: 157.5 kg

DRUGS (24)
  1. LOSARTAN (COZAAR) [Concomitant]
  2. COQ10 [Concomitant]
     Active Substance: UBIDECARENONE
  3. MUCINEX [Concomitant]
     Active Substance: GUAIFENESIN
  4. POTASSIUM GLUCONATE [Concomitant]
     Active Substance: POTASSIUM GLUCONATE
  5. MULTI VITAMIN + MINERAL SUPPLEMENT [Concomitant]
  6. AZELZSTINE [Concomitant]
  7. NAPROXEN SODIUM. [Concomitant]
     Active Substance: NAPROXEN SODIUM
  8. LEVAQUIN [Suspect]
     Active Substance: LEVOFLOXACIN
     Indication: SINUSITIS
     Dosage: ?          QUANTITY:24 TABLET(S);?
     Route: 048
     Dates: start: 20170201, end: 20170212
  9. TRULICITY [Concomitant]
     Active Substance: DULAGLUTIDE
  10. PRISTIQ EXTENDED-RELEASE [Concomitant]
     Active Substance: DESVENLAFAXINE SUCCINATE
  11. BIOTIN [Concomitant]
     Active Substance: BIOTIN
  12. IBUPROPHEN [Concomitant]
     Active Substance: IBUPROFEN
  13. CALCIUM + D3 [Concomitant]
     Active Substance: CALCIUM\CHOLECALCIFEROL
  14. PSEUDOEPHEDRINE HYDROCHLORIDE. [Concomitant]
     Active Substance: PSEUDOEPHEDRINE HYDROCHLORIDE
  15. PIOGITIZONE HCL (ACTOS) [Concomitant]
  16. NASACORT [Concomitant]
     Active Substance: TRIAMCINOLONE ACETONIDE
  17. SPIRONOLACTONE. [Concomitant]
     Active Substance: SPIRONOLACTONE
  18. FIORICET [Concomitant]
     Active Substance: ACETAMINOPHEN\BUTALBITAL\CAFFEINE
  19. ORPHENADRINE [Concomitant]
     Active Substance: ORPHENADRINE
  20. MAGNESIUM [Concomitant]
     Active Substance: MAGNESIUM
  21. ASPIRIN. [Concomitant]
     Active Substance: ASPIRIN
  22. LIVALO [Concomitant]
     Active Substance: PITAVASTATIN CALCIUM
  23. CLONAZEPAM. [Concomitant]
     Active Substance: CLONAZEPAM
  24. ACETAMINOPHEN. [Concomitant]
     Active Substance: ACETAMINOPHEN

REACTIONS (4)
  - Tendon pain [None]
  - Musculoskeletal stiffness [None]
  - Gait disturbance [None]
  - Tendon rupture [None]

NARRATIVE: CASE EVENT DATE: 20170201
